FAERS Safety Report 25377240 (Version 1)
Quarter: 2025Q2

REPORT INFORMATION
  Report Type: Spontaneous
  Country: US (occurrence: US)
  Receive Date: 20250530
  Receipt Date: 20250530
  Transmission Date: 20250717
  Serious: No
  Sender: OTSUKA
  Company Number: US-MMM-Otsuka-2UDPG5IY

PATIENT

DRUGS (1)
  1. SAMSCA [Suspect]
     Active Substance: TOLVAPTAN
     Indication: Blood sodium increased
     Route: 065

REACTIONS (1)
  - Off label use [Unknown]
